FAERS Safety Report 6909269-2 (Version None)
Quarter: 2010Q3

REPORT INFORMATION
  Report Type: 
  Country: None (occurrence: None)
  Receive Date: 20100805
  Receipt Date: 20100722
  Transmission Date: 20110219
  Serious: Yes (Other)
  Sender: FDA-Public Use
  Company Number: PHHY2010BE48247

PATIENT
  Sex: Female

DRUGS (1)
  1. ZOMETA [Suspect]
     Dosage: UNK
     Dates: start: 20090401

REACTIONS (8)
  - CENTRAL NERVOUS SYSTEM NECROSIS [None]
  - GASTROENTERITIS [None]
  - MALIGNANT NEOPLASM PROGRESSION [None]
  - MALIGNANT TUMOUR EXCISION [None]
  - METASTASES TO BONE [None]
  - METASTASES TO MENINGES [None]
  - OSTEONECROSIS OF JAW [None]
  - PULMONARY EMBOLISM [None]
